FAERS Safety Report 10861137 (Version 1)
Quarter: 2015Q1

REPORT INFORMATION
  Report Type: Spontaneous
  Country: US (occurrence: US)
  Receive Date: 20150223
  Receipt Date: 20150223
  Transmission Date: 20150721
  Serious: Yes (Hospitalization)
  Sender: FDA-Public Use
  Company Number: US-BEH-2015048916

PATIENT
  Sex: Female
  Weight: 78 kg

DRUGS (52)
  1. PRIVIGEN [Suspect]
     Active Substance: HUMAN IMMUNOGLOBULIN G
     Indication: IMMUNODEFICIENCY COMMON VARIABLE
     Route: 042
  2. PRIVIGEN [Suspect]
     Active Substance: HUMAN IMMUNOGLOBULIN G
     Indication: MULTIPLE SCLEROSIS
     Route: 042
  3. BUTORPHANOL [Concomitant]
     Active Substance: BUTORPHANOL
  4. NEURONTIN [Concomitant]
     Active Substance: GABAPENTIN
  5. NEXIUM [Concomitant]
     Active Substance: ESOMEPRAZOLE MAGNESIUM
  6. HEPARIN [Concomitant]
     Active Substance: HEPARIN SODIUM
  7. NORMAL SALINE [Concomitant]
     Active Substance: SODIUM CHLORIDE
  8. ZOFRAN [Concomitant]
     Active Substance: ONDANSETRON HYDROCHLORIDE
  9. MELATONIN [Concomitant]
     Active Substance: MELATONIN
  10. VALIUM [Concomitant]
     Active Substance: DIAZEPAM
  11. PROMETHAZINE [Concomitant]
     Active Substance: PROMETHAZINE\PROMETHAZINE HYDROCHLORIDE
  12. PRIVIGEN [Suspect]
     Active Substance: HUMAN IMMUNOGLOBULIN G
  13. TRAMADOL [Concomitant]
     Active Substance: TRAMADOL
  14. MIRALAX [Concomitant]
     Active Substance: POLYETHYLENE GLYCOL 3350
  15. MACROBID [Concomitant]
     Active Substance: NITROFURANTOIN\NITROFURANTOIN MONOHYDRATE
  16. TOPAMAX [Concomitant]
     Active Substance: TOPIRAMATE
  17. ZITHROMAX [Concomitant]
     Active Substance: AZITHROMYCIN DIHYDRATE
  18. EFFEXOR XR [Concomitant]
     Active Substance: VENLAFAXINE HYDROCHLORIDE
  19. DIPHENHYDRAMINE [Concomitant]
     Active Substance: DIPHENHYDRAMINE
  20. SODIUM CHLORIDE. [Concomitant]
     Active Substance: SODIUM CHLORIDE
  21. EPIPEN [Concomitant]
     Active Substance: EPINEPHRINE
  22. LYRICA [Concomitant]
     Active Substance: PREGABALIN
  23. TEGRETOL [Concomitant]
     Active Substance: CARBAMAZEPINE
  24. FROVA [Concomitant]
     Active Substance: FROVATRIPTAN SUCCINATE
  25. MUCINEX [Concomitant]
     Active Substance: GUAIFENESIN
  26. AMITRIPTYLINE [Concomitant]
     Active Substance: AMITRIPTYLINE
  27. MAALOX ANTACID [Concomitant]
     Active Substance: ALUMINUM HYDROXIDE\DIMETHICONE\MAGNESIUM HYDROXIDE
  28. MORPHINE [Concomitant]
     Active Substance: MORPHINE
  29. XYLOCAINE [Concomitant]
     Active Substance: LIDOCAINE HYDROCHLORIDE
  30. IBUPROFEN. [Concomitant]
     Active Substance: IBUPROFEN
  31. PROCHLORPERAZINE. [Concomitant]
     Active Substance: PROCHLORPERAZINE
  32. DRONABINOL. [Concomitant]
     Active Substance: DRONABINOL
  33. RELIPAX [Concomitant]
  34. CITALOPRAM [Concomitant]
     Active Substance: CITALOPRAM HYDROBROMIDE
  35. CEFTIN [Concomitant]
     Active Substance: CEFUROXIME AXETIL
  36. SINGULAIR [Concomitant]
     Active Substance: MONTELUKAST SODIUM
  37. ALBUTEROL. [Concomitant]
     Active Substance: ALBUTEROL
  38. NAMENDA [Concomitant]
     Active Substance: MEMANTINE HYDROCHLORIDE
  39. CYANOCOBALAMIN. [Concomitant]
     Active Substance: CYANOCOBALAMIN
  40. MARINOL [Concomitant]
     Active Substance: DRONABINOL
  41. MECLIZINE [Concomitant]
     Active Substance: MECLIZINE\MECLIZINE HYDROCHLORIDE
  42. RANITIDINE [Concomitant]
     Active Substance: RANITIDINE\RANITIDINE HYDROCHLORIDE
  43. BACLOFEN. [Concomitant]
     Active Substance: BACLOFEN
  44. NYSTATIN. [Concomitant]
     Active Substance: NYSTATIN
  45. CRANBERRY. [Concomitant]
     Active Substance: CRANBERRY
  46. CHLORPROMAZINE [Concomitant]
     Active Substance: CHLORPROMAZINE
  47. DHEA ACETATE [Concomitant]
  48. ACETAMINOPHEN. [Concomitant]
     Active Substance: ACETAMINOPHEN
  49. BENICAR [Concomitant]
     Active Substance: OLMESARTAN MEDOXOMIL
  50. SONATA [Concomitant]
     Active Substance: ZALEPLON
  51. ATIVAN [Concomitant]
     Active Substance: LORAZEPAM
  52. TIZANIDINE (TIZANIDINE) [Concomitant]
     Active Substance: TIZANIDINE

REACTIONS (1)
  - Respiratory disorder [Unknown]
